FAERS Safety Report 18913166 (Version 11)
Quarter: 2021Q3

REPORT INFORMATION
  Report Type: Report from Study
  Country: JP (occurrence: JP)
  Receive Date: 20210218
  Receipt Date: 20210903
  Transmission Date: 20211014
  Serious: Yes (Death, Life-Threatening, Other)
  Sender: FDA-Public Use
  Company Number: JP-GILEAD-2021-0517601

PATIENT
  Age: 67 Year
  Sex: Male
  Weight: 72.7 kg

DRUGS (29)
  1. FEBURIC [Concomitant]
     Active Substance: FEBUXOSTAT
     Indication: HYPERURICAEMIA
     Dosage: UNK
     Route: 048
     Dates: end: 20200814
  2. BELSOMRA [Concomitant]
     Active Substance: SUVOREXANT
     Indication: PROPHYLAXIS
     Dosage: UNK
     Route: 048
     Dates: start: 20200815, end: 20200820
  3. ROZEREM [Concomitant]
     Active Substance: RAMELTEON
     Indication: INSOMNIA
     Dosage: 8 MG, QD
     Route: 048
     Dates: start: 20200815, end: 20200821
  4. DEXMEDETOMIDINE. [Concomitant]
     Active Substance: DEXMEDETOMIDINE
     Indication: SEDATION
     Dosage: 48 UG/H, CONTINUOUS
     Route: 042
     Dates: start: 20200814, end: 20200821
  5. FAMOTIDINE. [Concomitant]
     Active Substance: FAMOTIDINE
     Indication: PROPHYLAXIS AGAINST GASTROINTESTINAL ULCER
     Dosage: 20 MG, BID
     Route: 042
     Dates: start: 20200816, end: 20200825
  6. REMDESIVIR. [Suspect]
     Active Substance: REMDESIVIR
     Indication: COVID-19
     Dosage: 200 MG, QD
     Route: 042
     Dates: start: 20200814, end: 20200814
  7. FEBURIC [Concomitant]
     Active Substance: FEBUXOSTAT
     Dosage: UNK
     Route: 048
     Dates: start: 20200814
  8. ACELIO [Concomitant]
     Active Substance: ACETAMINOPHEN
     Indication: PYREXIA
     Dosage: PRN
     Route: 041
     Dates: start: 20200820, end: 20200821
  9. ROZEREM [Concomitant]
     Active Substance: RAMELTEON
     Dosage: UNK
     Route: 048
     Dates: start: 20200815, end: 20200820
  10. REMDESIVIR. [Suspect]
     Active Substance: REMDESIVIR
     Dosage: 100 MG, QD
     Route: 042
     Dates: start: 20200815, end: 20200820
  11. DIPRIVAN [Suspect]
     Active Substance: PROPOFOL
     Indication: SEDATIVE THERAPY
     Dosage: 12 ML/H, CONTINUOUS
     Route: 042
     Dates: start: 20200814, end: 20200821
  12. TRAZENTA [Concomitant]
     Active Substance: LINAGLIPTIN
     Indication: DIABETES MELLITUS
     Dosage: UNK
     Route: 048
     Dates: end: 20200814
  13. TRAZENTA [Concomitant]
     Active Substance: LINAGLIPTIN
     Dosage: UNK
     Route: 048
     Dates: start: 20200814
  14. ZACRAS COMBINATION [Concomitant]
     Active Substance: AMLODIPINE BESYLATE\AZILSARTAN
     Indication: HYPERTENSION
     Dosage: UNK
     Route: 048
     Dates: start: 20200812, end: 20200814
  15. SODIUM PICOSULFATE [Concomitant]
     Active Substance: SODIUM PICOSULFATE
     Indication: CONSTIPATION PROPHYLAXIS
     Dosage: UNK
     Route: 048
     Dates: start: 20200817, end: 20200820
  16. RISPERIDONE. [Concomitant]
     Active Substance: RISPERIDONE
     Indication: PROPHYLAXIS
     Dosage: 0.1%, 1 ML
     Route: 048
     Dates: start: 20200816, end: 20200821
  17. HUMULIN R [Concomitant]
     Active Substance: INSULIN HUMAN
     Indication: DIABETES MELLITUS
     Dosage: UNK
     Route: 048
     Dates: start: 20200814, end: 20200828
  18. HEPARIN [Concomitant]
     Active Substance: HEPARIN SODIUM
     Dosage: UNK
     Route: 041
     Dates: start: 20200814, end: 20200821
  19. DEXART [Concomitant]
     Active Substance: DEXAMETHASONE SODIUM PHOSPHATE
     Indication: INFLAMMATION
     Dosage: 6.6 MG, QD
     Route: 042
     Dates: start: 20200812, end: 20200820
  20. FENTANYL. [Concomitant]
     Active Substance: FENTANYL
     Indication: ANAESTHESIA PROCEDURE
     Dosage: CONTINUOUS
     Route: 042
     Dates: start: 20200814, end: 20200909
  21. ESLAX [Concomitant]
     Active Substance: ROCURONIUM BROMIDE
     Indication: MUSCLE RELAXANT THERAPY
     Dosage: UNK
     Route: 042
     Dates: start: 20200814, end: 20200827
  22. NICARDIPINE HYDROCHLORIDE. [Concomitant]
     Active Substance: NICARDIPINE HYDROCHLORIDE
     Indication: BLOOD PRESSURE MANAGEMENT
     Dosage: 25 ML
     Route: 041
     Dates: start: 20200814, end: 20200821
  23. SUVOREXANT. [Concomitant]
     Active Substance: SUVOREXANT
     Dosage: 15 MG, QD
     Route: 048
     Dates: start: 20200815, end: 20200820
  24. HEAVY MAGNESIUM OXIDE [Concomitant]
     Active Substance: MAGNESIUM OXIDE
     Dosage: UNK
     Route: 048
     Dates: start: 20200818, end: 20200906
  25. NORADRENALINE [NOREPINEPHRINE] [Concomitant]
     Active Substance: NOREPINEPHRINE
     Indication: HYPERTENSION
     Dosage: UNK
     Route: 042
     Dates: start: 20200814, end: 20200827
  26. ROSUVASTATIN. [Concomitant]
     Active Substance: ROSUVASTATIN
     Indication: HYPERLIPIDAEMIA
     Dosage: UNK
     Route: 048
     Dates: end: 20200814
  27. ROSUVASTATIN. [Concomitant]
     Active Substance: ROSUVASTATIN
     Dosage: UNK
     Route: 048
     Dates: start: 20200814
  28. FUROSEMIDE. [Concomitant]
     Active Substance: FUROSEMIDE
     Indication: DIURETIC THERAPY
     Dosage: UNK
     Route: 042
     Dates: start: 20200817, end: 20200819
  29. PANTETHINE [Concomitant]
     Active Substance: PANTETHINE
     Dosage: UNK
     Route: 048
     Dates: start: 20200818, end: 20200906

REACTIONS (8)
  - Liver function test abnormal [Recovered/Resolved]
  - Multiple organ dysfunction syndrome [Recovering/Resolving]
  - Bacterial infection [Recovered/Resolved]
  - Rectal ulcer haemorrhage [Fatal]
  - Rhabdomyolysis [Recovered/Resolved]
  - Platelet count decreased [Recovered/Resolved]
  - Neuroleptic malignant syndrome [Recovered/Resolved]
  - Renal failure [Not Recovered/Not Resolved]

NARRATIVE: CASE EVENT DATE: 20200817
